FAERS Safety Report 9276711 (Version 4)
Quarter: 2013Q2

REPORT INFORMATION
  Report Type: Spontaneous
  Country: US (occurrence: US)
  Receive Date: 20130507
  Receipt Date: 20130628
  Transmission Date: 20140414
  Serious: Yes (Other)
  Sender: FDA-Public Use
  Company Number: US-JNJFOC-20130417833

PATIENT
  Age: 37 Year
  Sex: Female
  Weight: 90.72 kg

DRUGS (5)
  1. ZYRTEC-D [Suspect]
     Route: 048
  2. ZYRTEC-D [Suspect]
     Indication: MULTIPLE ALLERGIES
     Dosage: ONE TABLET ONECE DAILY
     Route: 048
     Dates: start: 201303, end: 201303
  3. BELLADONNA [Concomitant]
     Indication: NASAL CONGESTION
     Dosage: FOR 7 DAYS
     Route: 065
     Dates: start: 2013
  4. BELLADONNA [Concomitant]
     Indication: EAR PAIN
     Dosage: FOR 7 DAYS
     Route: 065
     Dates: start: 2013
  5. BELLADONNA [Concomitant]
     Indication: SECRETION DISCHARGE
     Dosage: FOR 7 DAYS
     Route: 065
     Dates: start: 2013

REACTIONS (3)
  - Asthma [Recovered/Resolved]
  - Nervousness [Recovered/Resolved]
  - Dyspnoea [Recovered/Resolved]
